FAERS Safety Report 7711006-9 (Version None)
Quarter: 2011Q3

REPORT INFORMATION
  Report Type: 
  Country: None (occurrence: None)
  Receive Date: 20110825
  Receipt Date: 20110817
  Transmission Date: 20111222
  Serious: Yes (Death)
  Sender: FDA-Public Use
  Company Number: JP-GENENTECH-323414

PATIENT
  Age: 76 Year
  Sex: Female

DRUGS (2)
  1. ALTEPLASE [Suspect]
     Indication: PULMONARY EMBOLISM
     Dosage: 24000000 IU, UNK
     Route: 065
  2. WARFARIN SODIUM [Concomitant]
     Indication: PRODUCT USED FOR UNKNOWN INDICATION

REACTIONS (1)
  - CEREBRAL HAEMORRHAGE [None]
